FAERS Safety Report 8403165 (Version 6)
Quarter: 2012Q4

REPORT INFORMATION
  Report Type: Report from Study
  Country: US (occurrence: US)
  Receive Date: 20120213
  Receipt Date: 20120904
  Transmission Date: 20130627
  Serious: Yes (Hospitalization)
  Sender: FDA-Public Use
  Company Number: US-ROCHE-1036791

PATIENT
  Age: 67 Year
  Sex: Male
  Weight: 75.74 kg

DRUGS (10)
  1. AVASTIN [Suspect]
     Indication: NON-SMALL CELL LUNG CANCER
     Route: 042
     Dates: start: 20100104, end: 20100319
  2. CARBOPLATIN [Suspect]
     Indication: NON-SMALL CELL LUNG CANCER
     Route: 042
     Dates: start: 20100104
  3. PACLITAXEL [Suspect]
     Indication: NON-SMALL CELL LUNG CANCER
     Route: 042
     Dates: start: 20100104, end: 20100226
  4. ALBUTEROL SULFATE [Concomitant]
  5. COLACE [Concomitant]
     Route: 065
     Dates: start: 201001
  6. COMBIVENT [Concomitant]
  7. EX-LAX (SENNOSIDES) [Concomitant]
     Route: 065
     Dates: start: 201001
  8. HYDROCODONE [Concomitant]
  9. NEXIUM [Concomitant]
  10. NEUPOGEN [Concomitant]

REACTIONS (2)
  - Urinary retention [Not Recovered/Not Resolved]
  - Cellulitis [Not Recovered/Not Resolved]
